FAERS Safety Report 8826413 (Version 2)
Quarter: 2013Q1

REPORT INFORMATION
  Report Type: Spontaneous
  Country: US (occurrence: US)
  Receive Date: 20121005
  Receipt Date: 20130312
  Transmission Date: 20140127
  Serious: Yes (Hospitalization, Other)
  Sender: FDA-Public Use
  Company Number: PHEH2012US015646

PATIENT
  Age: 31 Year
  Sex: Female
  Weight: 64.4 kg

DRUGS (5)
  1. GILENYA [Suspect]
     Indication: RELAPSING-REMITTING MULTIPLE SCLEROSIS
     Dosage: 0.5 MG, QD
     Route: 048
     Dates: start: 20110926
  2. FAMPRIDINE [Suspect]
     Indication: GAIT DISTURBANCE
     Dosage: 10 MG, BID
     Route: 048
     Dates: start: 20120820
  3. HYDROCODONE [Concomitant]
     Dosage: 500 MG, BID
     Route: 048
  4. NAPROXEN [Concomitant]
     Dosage: 500 MG, Q12H
     Route: 048
  5. VENLAFAXINE HYDROCHLORIDE [Concomitant]
     Dosage: 37.5 MG, DAILY
     Route: 048

REACTIONS (14)
  - Uterine mass [Recovered/Resolved]
  - Ovarian cyst ruptured [Recovered/Resolved]
  - Abdominal pain [Recovered/Resolved]
  - Blood pressure decreased [Unknown]
  - Sensation of heaviness [Recovered/Resolved]
  - Peroneal nerve palsy [Unknown]
  - Irritability [Unknown]
  - Muscular weakness [Recovered/Resolved]
  - Nausea [Unknown]
  - Fatigue [Unknown]
  - Pain [Unknown]
  - Paraesthesia [Unknown]
  - Diarrhoea [Unknown]
  - Dizziness [Unknown]
